FAERS Safety Report 6073320-5 (Version None)
Quarter: 2009Q1

REPORT INFORMATION
  Report Type: 
  Country: None (occurrence: None)
  Receive Date: 20090211
  Receipt Date: 20090202
  Transmission Date: 20090719
  Serious: Yes (Congenital Anomaly, Other)
  Sender: FDA-Public Use
  Company Number: PHHY2009ZA03731

PATIENT

DRUGS (2)
  1. SANDIMMUNE [Suspect]
     Route: 064
  2. CORTICOSTEROIDS [Concomitant]

REACTIONS (2)
  - CONGENITAL FOOT MALFORMATION [None]
  - DRUG EXPOSURE BEFORE PREGNANCY [None]
